FAERS Safety Report 6847467-7 (Version None)
Quarter: 2010Q3

REPORT INFORMATION
  Report Type: 
  Country: None (occurrence: None)
  Receive Date: 20100716
  Receipt Date: 20100706
  Transmission Date: 20110219
  Serious: Yes (Death)
  Sender: FDA-Public Use
  Company Number: NL-PFIZER INC-2010081561

PATIENT
  Age: 72 Year
  Sex: Male
  Weight: 90 kg

DRUGS (4)
  1. PEGVISOMANT [Suspect]
     Indication: ACROMEGALY
     Dosage: UNK
     Dates: start: 20090520, end: 20100408
  2. LISINOPRIL [Concomitant]
     Dosage: UNK
  3. ACENOCOUMAROL [Concomitant]
     Dosage: UNK
  4. ANDROGEL [Concomitant]
     Dosage: UNK

REACTIONS (1)
  - DEATH [None]
